FAERS Safety Report 7620886-7 (Version None)
Quarter: 2011Q3

REPORT INFORMATION
  Report Type: 
  Country: None (occurrence: None)
  Receive Date: 20110719
  Receipt Date: 20110713
  Transmission Date: 20111222
  Serious: Yes (Other)
  Sender: FDA-Public Use
  Company Number: US-PFIZER INC-2011158535

PATIENT

DRUGS (1)
  1. ZYVOX [Suspect]
     Dosage: UNK
     Route: 042

REACTIONS (2)
  - ILEOSTOMY [None]
  - SURGERY [None]
